FAERS Safety Report 6150865-0 (Version None)
Quarter: 2009Q2

REPORT INFORMATION
  Report Type: 
  Country: None (occurrence: None)
  Receive Date: 20090408
  Receipt Date: 20090326
  Transmission Date: 20091009
  Serious: Yes (Other)
  Sender: FDA-Public Use
  Company Number: 2009S1003204

PATIENT
  Age: 11 Year
  Sex: Male
  Weight: 38.1022 kg

DRUGS (8)
  1. LEVETIRACETAM [Suspect]
     Indication: COMPLEX PARTIAL SEIZURES
     Dosage: 750 MG; TWICE A DAY; ORAL
     Route: 048
     Dates: start: 20090131, end: 20090206
  2. DILANTIN [Suspect]
     Indication: COMPLEX PARTIAL SEIZURES
     Dosage: 300 MG; DAILY; ORAL
     Route: 048
     Dates: start: 20070101
  3. DILANTIN [Suspect]
     Indication: TEMPORAL LOBE EPILEPSY
     Dosage: 300 MG; DAILY; ORAL
     Route: 048
     Dates: start: 20070101
  4. LEVETIRACETAM [Suspect]
     Indication: COMPLEX PARTIAL SEIZURES
     Dosage: 1500 MG; DAILY; ORAL, 1500 MG; DAILY; ORAL
     Route: 048
     Dates: start: 20070101, end: 20090201
  5. LEVETIRACETAM [Suspect]
     Indication: COMPLEX PARTIAL SEIZURES
     Dosage: 1500 MG; DAILY; ORAL, 1500 MG; DAILY; ORAL
     Route: 048
     Dates: start: 20090201
  6. FISH OIL [Concomitant]
  7. MULTI-VITAMINS [Concomitant]
  8. ADDERALL 10 [Concomitant]

REACTIONS (3)
  - DRUG LEVEL DECREASED [None]
  - PSYCHOMOTOR HYPERACTIVITY [None]
  - TEMPORAL LOBE EPILEPSY [None]
